FAERS Safety Report 19901072 (Version 2)
Quarter: 2022Q2

REPORT INFORMATION
  Report Type: Spontaneous
  Country: US (occurrence: US)
  Receive Date: 20210930
  Receipt Date: 20220509
  Transmission Date: 20220721
  Serious: No
  Sender: FDA-Public Use
  Company Number: US-PFIZER INC-202100923646

PATIENT
  Age: 56 Year
  Sex: Female

DRUGS (1)
  1. XELJANZ [Suspect]
     Active Substance: TOFACITINIB CITRATE
     Indication: Colitis ulcerative
     Dosage: 10 MG, 2X/DAY
     Route: 048
     Dates: start: 20210714

REACTIONS (7)
  - Therapeutic product effect incomplete [Unknown]
  - Arthralgia [Unknown]
  - Headache [Unknown]
  - Dizziness [Unknown]
  - Pain [Unknown]
  - Herpes zoster [Unknown]
  - Off label use [Unknown]
